FAERS Safety Report 20745289 (Version 11)
Quarter: 2022Q4

REPORT INFORMATION
  Report Type: Report from Study
  Country: US (occurrence: US)
  Receive Date: 20220425
  Receipt Date: 20221128
  Transmission Date: 20230112
  Serious: Yes (Hospitalization)
  Sender: FDA-Public Use
  Company Number: US-NOVARTISTESTPH-NVSC2022US094500

PATIENT
  Sex: Female
  Weight: 97.506 kg

DRUGS (6)
  1. TREPROSTINIL [Suspect]
     Active Substance: TREPROSTINIL
     Indication: Pulmonary arterial hypertension
     Dosage: 87 NG/KG/MIN, CONT
     Route: 042
     Dates: start: 20190813
  2. TREPROSTINIL [Suspect]
     Active Substance: TREPROSTINIL
     Dosage: 97 NG/KG/ MIN CONT
     Route: 042
  3. TREPROSTINIL [Suspect]
     Active Substance: TREPROSTINIL
     Dosage: 97 NG/KG/ MIN, CONT
     Route: 042
  4. TREPROSTINIL [Suspect]
     Active Substance: TREPROSTINIL
     Dosage: 97 NG/KG/ MIN CONT
     Route: 042
     Dates: start: 20210325
  5. TREPROSTINIL [Suspect]
     Active Substance: TREPROSTINIL
     Dosage: 107 NG/KG/MIN CONT
     Route: 058
  6. TADALAFIL [Concomitant]
     Active Substance: TADALAFIL
     Indication: Product used for unknown indication
     Dosage: UNK
     Route: 065

REACTIONS (7)
  - Migraine [Unknown]
  - Headache [Not Recovered/Not Resolved]
  - Gait disturbance [Unknown]
  - General physical health deterioration [Unknown]
  - Arthralgia [Not Recovered/Not Resolved]
  - Fatigue [Unknown]
  - Malaise [Unknown]
